FAERS Safety Report 5467063-6 (Version None)
Quarter: 2007Q3

REPORT INFORMATION
  Report Type: 
  Country: None (occurrence: None)
  Receive Date: 20070925
  Receipt Date: 20070919
  Transmission Date: 20080115
  Serious: Yes (Hospitalization, Disabling)
  Sender: FDA-Public Use
  Company Number: B0484745A

PATIENT
  Age: 43 Year

DRUGS (1)
  1. NIQUITIN CQ PATCH, CLEAR [Suspect]
     Dates: start: 20061015, end: 20070416

REACTIONS (7)
  - APPLICATION SITE ERYTHEMA [None]
  - APPLICATION SITE PAIN [None]
  - ECZEMA [None]
  - ERYTHEMA [None]
  - HYPERAESTHESIA [None]
  - INFECTION [None]
  - WEIGHT INCREASED [None]
